FAERS Safety Report 24041695 (Version 2)
Quarter: 2024Q3

REPORT INFORMATION
  Report Type: Spontaneous
  Country: JP (occurrence: JP)
  Receive Date: 20240702
  Receipt Date: 20240805
  Transmission Date: 20241016
  Serious: No
  Sender: BAYER
  Company Number: JP-BAYER-2024A092630

PATIENT
  Age: 70 Year
  Sex: Male

DRUGS (1)
  1. KERENDIA [Suspect]
     Active Substance: FINERENONE
     Dosage: UNK
     Route: 048
     Dates: start: 20240618

REACTIONS (1)
  - Abdominal pain upper [Unknown]

NARRATIVE: CASE EVENT DATE: 20240626
